FAERS Safety Report 15449263 (Version 5)
Quarter: 2018Q4

REPORT INFORMATION
  Report Type: Report from Study
  Country: FR (occurrence: FR)
  Receive Date: 20181001
  Receipt Date: 20181126
  Transmission Date: 20190204
  Serious: Yes (Other)
  Sender: FDA-Public Use
  Company Number: FR-ROCHE-2190835

PATIENT
  Age: 29 Year
  Sex: Female
  Weight: 64 kg

DRUGS (2)
  1. OMALIZUMAB. [Suspect]
     Active Substance: OMALIZUMAB
     Dosage: (150 MG)
     Route: 058
     Dates: start: 20180830, end: 20180830
  2. OMALIZUMAB. [Suspect]
     Active Substance: OMALIZUMAB
     Indication: URTICARIA
     Dosage: (75 MG)
     Route: 058
     Dates: start: 20180830

REACTIONS (8)
  - Bronchospasm [Recovered/Resolved]
  - Cough [Recovered/Resolved]
  - Angioedema [Recovered/Resolved]
  - Hot flush [Recovered/Resolved]
  - Dyspnoea [Recovered/Resolved]
  - Dysphonia [Recovered/Resolved]
  - Laryngeal oedema [Recovered/Resolved]
  - Type I hypersensitivity [Unknown]

NARRATIVE: CASE EVENT DATE: 20180830
